FAERS Safety Report 17976854 (Version 1)
Quarter: 2020Q3

REPORT INFORMATION
  Report Type: Report from Study
  Country: US (occurrence: US)
  Receive Date: 20200702
  Receipt Date: 20200702
  Transmission Date: 20201103
  Serious: Yes (Death)
  Sender: FDA-Public Use
  Company Number: US-ACTELION-A-US2019-194144

PATIENT
  Age: 69 Year
  Sex: Male

DRUGS (7)
  1. FENOFIBRATE. [Concomitant]
     Active Substance: FENOFIBRATE
     Dosage: 134 MG, QD
     Dates: end: 20200619
  2. ASPIRIN. [Concomitant]
     Active Substance: ASPIRIN
     Dosage: 81 MG, QD
     Dates: start: 2000, end: 20200619
  3. TYVASO [Concomitant]
     Active Substance: TREPROSTINIL
     Dosage: 1.74 MG, 4TIMES A DAY
     Dates: start: 20190716, end: 20200619
  4. METFORMIN [Concomitant]
     Active Substance: METFORMIN HYDROCHLORIDE
     Indication: ESSENTIAL HYPERTENSION
     Dosage: 1000 MG, QD
     Dates: end: 20200619
  5. CRESTOR [Concomitant]
     Active Substance: ROSUVASTATIN CALCIUM
     Dosage: 40 MG, QD
     Dates: end: 20200619
  6. OPSUMIT [Suspect]
     Active Substance: MACITENTAN
     Indication: PULMONARY ARTERIAL HYPERTENSION
     Dosage: 10 MG, QD
     Route: 048
     Dates: start: 20190708, end: 20200619
  7. PLAVIX [Concomitant]
     Active Substance: CLOPIDOGREL BISULFATE
     Dosage: 75 MG, QD
     Dates: start: 20190428, end: 20200619

REACTIONS (9)
  - Oxygen consumption decreased [Not Recovered/Not Resolved]
  - Fatigue [Recovering/Resolving]
  - Headache [Not Recovered/Not Resolved]
  - Dizziness [Not Recovered/Not Resolved]
  - Condition aggravated [Not Recovered/Not Resolved]
  - Dyspnoea [Unknown]
  - Cyanosis [Unknown]
  - Respiratory failure [Fatal]
  - Respiratory disorder [Not Recovered/Not Resolved]

NARRATIVE: CASE EVENT DATE: 201907
